FAERS Safety Report 4368673-X (Version None)
Quarter: 2004Q2

REPORT INFORMATION
  Report Type: 
  Country: None (occurrence: None)
  Receive Date: 20040602
  Receipt Date: 20040524
  Transmission Date: 20050107
  Serious: Yes (Hospitalization)
  Sender: FDA-Public Use
  Company Number: 2004-05-1607

PATIENT
  Age: 61 Year
  Sex: Female
  Weight: 100 kg

DRUGS (3)
  1. DIPROSONE [Suspect]
     Indication: SKIN LESION
     Dosage: UNK 1 TUBE/MO TOP-DERM
     Dates: start: 19940101
  2. ACTRAPID HUMAN FOR DIABETES MELLITUS INSULIN-DEPENDENT [Concomitant]
  3. INSULATARD FOR DIABETES MELLITUS INSULIN-DEPENDENT [Concomitant]

REACTIONS (1)
  - DIABETES MELLITUS INADEQUATE CONTROL [None]
